FAERS Safety Report 17556278 (Version 1)
Quarter: 2020Q1

REPORT INFORMATION
  Report Type: Spontaneous
  Country: US (occurrence: US)
  Receive Date: 20200318
  Receipt Date: 20200318
  Transmission Date: 20200409
  Serious: No
  Sender: FDA-Public Use
  Company Number: None

PATIENT
  Age: 9 Month
  Sex: Male
  Weight: 6.2 kg

DRUGS (3)
  1. SYNAGIS [Suspect]
     Active Substance: PALIVIZUMAB
     Dosage: ?          OTHER FREQUENCY:Q 30 DAYS;?
     Route: 030
     Dates: start: 20191108
  2. LASIX 1.2 MG [Concomitant]
  3. PREVACID [Concomitant]
     Active Substance: LANSOPRAZOLE

REACTIONS (1)
  - Injection site pain [None]

NARRATIVE: CASE EVENT DATE: 20200216
